FAERS Safety Report 6140232-8 (Version None)
Quarter: 2009Q2

REPORT INFORMATION
  Report Type: 
  Country: None (occurrence: None)
  Receive Date: 20090401
  Receipt Date: 20090325
  Transmission Date: 20091009
  Serious: Yes (Hospitalization, Other)
  Sender: FDA-Public Use
  Company Number: US-ROXANE LABORATORIES, INC.-2009-RO-00288RO

PATIENT
  Age: 51 Year
  Sex: Male
  Weight: 87 kg

DRUGS (11)
  1. ONDANSETRON [Suspect]
     Indication: PROPHYLAXIS OF NAUSEA AND VOMITING
     Route: 042
  2. MIDAZOLAM HCL [Suspect]
     Indication: ANAESTHESIA
  3. ROCURONIUM BROMIDE [Suspect]
     Indication: ANAESTHESIA
  4. ISOFLURANE [Suspect]
     Indication: ANAESTHESIA
  5. NITROUS OXIDE [Suspect]
     Indication: ANAESTHESIA
  6. PROPOFOL [Suspect]
     Indication: ANAESTHESIA
  7. FENTANYL-25 [Suspect]
     Indication: ANAESTHESIA
  8. GLYCOPYRROLATE [Suspect]
     Route: 042
  9. CEFAZOLIN AND DEXTROSE [Suspect]
     Indication: INFECTION PROPHYLAXIS
     Dosage: 2G
     Route: 042
  10. ASPIRIN [Concomitant]
  11. HEPARIN [Concomitant]

REACTIONS (8)
  - ARTERIOSPASM CORONARY [None]
  - ATRIAL FIBRILLATION [None]
  - CHEST PAIN [None]
  - ELECTROCARDIOGRAM ST SEGMENT ELEVATION [None]
  - HYPERHIDROSIS [None]
  - HYPOTENSION [None]
  - NAUSEA [None]
  - VOMITING [None]
